FAERS Safety Report 5754419-7 (Version None)
Quarter: 2008Q2

REPORT INFORMATION
  Report Type: 
  Country: None (occurrence: None)
  Receive Date: 20080530
  Receipt Date: 20080523
  Transmission Date: 20081010
  Serious: Yes (Hospitalization)
  Sender: FDA-Public Use
  Company Number: US-BOEHRINGER INGELHEIM GMBH, GERMANY-2008-BP-07339BP

PATIENT
  Age: 69 Year
  Sex: Female

DRUGS (8)
  1. COMBIVENT [Suspect]
     Indication: SARCOIDOSIS
     Route: 055
     Dates: start: 20040101
  2. ADVAIR DISKUS 100/50 [Concomitant]
  3. OXYGEN [Concomitant]
  4. CLARITIN [Concomitant]
  5. PREVACID [Concomitant]
  6. CEPHADYN [Concomitant]
     Indication: HEADACHE
  7. ENABLEX [Concomitant]
  8. ACIPHEX [Concomitant]

REACTIONS (3)
  - CONFUSIONAL STATE [None]
  - DYSPNOEA [None]
  - HERNIA [None]
